FAERS Safety Report 25650062 (Version 1)
Quarter: 2025Q3

REPORT INFORMATION
  Report Type: Spontaneous
  Country: US (occurrence: None)
  Receive Date: 20250805
  Receipt Date: 20250805
  Transmission Date: 20251021
  Serious: Yes (Other)
  Sender: FDA-CTU
  Company Number: None

PATIENT
  Age: 10 Year
  Sex: Male

DRUGS (1)
  1. CHILDRENS MULTI SYMPTOM COLD [Suspect]
     Active Substance: DEXTROMETHORPHAN HYDROBROMIDE\GUAIFENESIN\PHENYLEPHRINE HYDROCHLORIDE
     Indication: Nasopharyngitis
     Route: 048
     Dates: start: 20250804, end: 20250805

REACTIONS (2)
  - Expired product administered [None]
  - Suspected product quality issue [None]

NARRATIVE: CASE EVENT DATE: 20250804
